FAERS Safety Report 4828199-3 (Version None)
Quarter: 2005Q4

REPORT INFORMATION
  Report Type: 
  Country: None (occurrence: None)
  Receive Date: 20051115
  Receipt Date: 20051107
  Transmission Date: 20060501
  Serious: Yes (Other)
  Sender: FDA-Public Use
  Company Number: BE-GLAXOSMITHKLINE-B0399593A

PATIENT
  Age: 53 Year
  Sex: Male

DRUGS (5)
  1. LAMIVUDINE [Suspect]
     Indication: HIV INFECTION
     Route: 065
     Dates: start: 20030101
  2. NEVIRAPINE [Suspect]
     Indication: HIV INFECTION
     Route: 065
     Dates: start: 20030101
  3. STAVUDINE [Suspect]
     Indication: HIV INFECTION
     Route: 065
     Dates: start: 20030101
  4. INDINAVIR [Suspect]
     Indication: HIV INFECTION
  5. CO-TRIMOXAZOLE [Concomitant]

REACTIONS (8)
  - BLISTER [None]
  - DERMATITIS BULLOUS [None]
  - DYSHIDROSIS [None]
  - IMMUNE RECONSTITUTION SYNDROME [None]
  - OEDEMA PERIPHERAL [None]
  - ONYCHOMYCOSIS [None]
  - SEBORRHOEIC DERMATITIS [None]
  - TINEA CRURIS [None]
